FAERS Safety Report 24166646 (Version 1)
Quarter: 2024Q3

REPORT INFORMATION
  Report Type: Report from Study
  Country: US (occurrence: US)
  Receive Date: 20240802
  Receipt Date: 20240802
  Transmission Date: 20241016
  Serious: No
  Sender: ALEXION PHARMACEUTICALS
  Company Number: US-AstraZeneca-CH-00673886A

PATIENT
  Age: 43 Year
  Sex: Female

DRUGS (2)
  1. ULTOMIRIS [Suspect]
     Active Substance: RAVULIZUMAB-CWVZ
     Indication: Neuromyelitis optica spectrum disorder
     Dosage: UNK
     Route: 042
     Dates: start: 20240725
  2. SOLIRIS [Suspect]
     Active Substance: ECULIZUMAB
     Indication: Neuromyelitis optica spectrum disorder
     Dosage: UNK
     Route: 065

REACTIONS (8)
  - Nausea [Recovered/Resolved]
  - Nasal congestion [Unknown]
  - Dyschromatopsia [Unknown]
  - Fatigue [Unknown]
  - Puncture site haemorrhage [Unknown]
  - Puncture site swelling [Unknown]
  - Puncture site pain [Unknown]
  - Poor venous access [Unknown]

NARRATIVE: CASE EVENT DATE: 20240725
